FAERS Safety Report 7202484-2 (Version None)
Quarter: 2010Q4

REPORT INFORMATION
  Report Type: 
  Country: None (occurrence: None)
  Receive Date: 20101229
  Receipt Date: 20101220
  Transmission Date: 20110411
  Serious: Yes (Other)
  Sender: FDA-Public Use
  Company Number: B0691214A

PATIENT
  Sex: Female

DRUGS (2)
  1. THIOGUANINE [Suspect]
     Dosage: 40MG PER DAY
     Route: 048
     Dates: start: 20101115, end: 20101130
  2. CYTARABINE [Suspect]
     Dosage: 23MG PER DAY
     Route: 058
     Dates: start: 20101123, end: 20101130

REACTIONS (1)
  - NEUTROPENIA [None]
